FAERS Safety Report 12310184 (Version 1)
Quarter: 2016Q2

REPORT INFORMATION
  Report Type: Spontaneous
  Country: CO (occurrence: CO)
  Receive Date: 20160427
  Receipt Date: 20160427
  Transmission Date: 20160815
  Serious: Yes (Other)
  Sender: FDA-Public Use
  Company Number: CO-GLAXOSMITHKLINE-CO2016JPN056574

PATIENT
  Age: 46 Year
  Sex: Female

DRUGS (3)
  1. REVOLADE [Suspect]
     Active Substance: ELTROMBOPAG
     Indication: THROMBOCYTOPENIC PURPURA
     Route: 065
     Dates: start: 20150727
  2. CRISOMET [Suspect]
     Active Substance: LAMOTRIGINE
     Indication: EPILEPSY
     Route: 065
  3. KEPPRA [Suspect]
     Active Substance: LEVETIRACETAM
     Indication: EPILEPSY
     Route: 065

REACTIONS (7)
  - Skin discolouration [None]
  - Seizure [None]
  - Treatment noncompliance [None]
  - Platelet count abnormal [Unknown]
  - Rash generalised [None]
  - Thrombocytopenic purpura [None]
  - Drug dose omission [None]

NARRATIVE: CASE EVENT DATE: 20160310
